FAERS Safety Report 6784390-0 (Version None)
Quarter: 2010Q2

REPORT INFORMATION
  Report Type: 
  Country: None (occurrence: None)
  Receive Date: 20100520
  Receipt Date: 20090604
  Transmission Date: 20101027
  Serious: Yes (Other)
  Sender: FDA-Public Use
  Company Number: 2008056981

PATIENT
  Age: 60 Year
  Sex: Female

DRUGS (12)
  1. PROVERA [Suspect]
     Indication: HORMONE REPLACEMENT THERAPY
     Dosage: 10 MG, ORAL; 10 MG, ORAL
     Route: 048
     Dates: start: 20010101, end: 20020501
  2. PROVERA [Suspect]
     Indication: HORMONE REPLACEMENT THERAPY
     Dosage: 10 MG, ORAL; 10 MG, ORAL
     Route: 048
     Dates: start: 19820101
  3. PREMARIN [Suspect]
     Indication: HORMONE REPLACEMENT THERAPY
     Dosage: 0.625 MG; 0.625 MG
     Dates: start: 20010101, end: 20020501
  4. PREMARIN [Suspect]
     Indication: HORMONE REPLACEMENT THERAPY
     Dosage: 0.625 MG; 0.625 MG
     Dates: start: 19820101
  5. PREMPRO [Suspect]
     Indication: HORMONE REPLACEMENT THERAPY
     Dates: end: 20010101
  6. ASPIRIN [Concomitant]
  7. HYDROCHLOROTHIAZIDE/TRIAMTERENE (HYDROCHLOROTHIAZIDE, TRIAMTERENE) [Concomitant]
  8. BELLAMINE (BELLADONNA ALKALOIDS, ERGOTAMINE TARTRATE, PHENOBARBITAL) [Concomitant]
  9. POTASSIUM (POTASSIUM) [Concomitant]
  10. CLARITIN-D [Concomitant]
  11. VITAMIN E [Concomitant]
  12. UNICAP T (VITAMINS NOS) [Concomitant]

REACTIONS (1)
  - BREAST CANCER [None]
